FAERS Safety Report 5324206-2 (Version None)
Quarter: 2007Q2

REPORT INFORMATION
  Report Type: 
  Country: None (occurrence: None)
  Receive Date: 20070514
  Receipt Date: 20070503
  Transmission Date: 20071010
  Serious: Yes (Hospitalization)
  Sender: FDA-Public Use
  Company Number: FR-ROCHE-496100

PATIENT
  Age: 59 Year
  Sex: Male
  Weight: 82 kg

DRUGS (5)
  1. PEG-INTERFERON A-2A (RO 25-8310) [Suspect]
     Dosage: FREQUENCY AS PER PROTOCOL.
     Route: 058
     Dates: start: 20061128, end: 20070424
  2. PEG-INTERFERON A-2A (RO 25-8310) [Suspect]
     Route: 058
     Dates: start: 20060904, end: 20060911
  3. RIBAVIRIN [Suspect]
     Route: 048
     Dates: start: 20060904, end: 20061003
  4. EPOETIN BETA [Suspect]
     Route: 058
     Dates: start: 20060919, end: 20061003
  5. EPOETIN BETA [Suspect]
     Route: 058
     Dates: start: 20061003, end: 20061024

REACTIONS (1)
  - GENERAL PHYSICAL HEALTH DETERIORATION [None]
